FAERS Safety Report 20607339 (Version 2)
Quarter: 2022Q2

REPORT INFORMATION
  Report Type: Report from Study
  Country: LB (occurrence: LB)
  Receive Date: 20220317
  Receipt Date: 20220405
  Transmission Date: 20220720
  Serious: Yes (Other)
  Sender: FDA-Public Use
  Company Number: LB-NOVARTISPH-NVSC2022LB060697

PATIENT
  Sex: Male
  Weight: 77 kg

DRUGS (3)
  1. TASIGNA [Suspect]
     Active Substance: NILOTINIB
     Indication: Chronic myeloid leukaemia
     Dosage: 2 DOSAGE FORM, BID (150 MG X 2 TABS BID)
     Route: 048
     Dates: end: 202110
  2. VITAMIN D [Concomitant]
     Active Substance: VITAMIN D NOS
     Indication: Product used for unknown indication
     Route: 065
  3. DORIXINA [Concomitant]
     Indication: Pain
     Dosage: UNK
     Route: 065

REACTIONS (1)
  - Periarthritis [Recovered/Resolved]
